FAERS Safety Report 6003073 (Version 11)
Quarter: 2014Q3

REPORT INFORMATION
  Report Type: Spontaneous
  Country: US (occurrence: US)
  Receive Date: 20060313
  Receipt Date: 20140813
  Transmission Date: 20150326
  Serious: Yes (Hospitalization, Other)
  Sender: FDA-Public Use
  Company Number: US-ROCHE-439163

PATIENT
  Age: 36 Year
  Sex: Female
  Weight: 59 kg

DRUGS (1)
  1. ACCUTANE [Suspect]
     Active Substance: ISOTRETINOIN
     Indication: ACNE
     Route: 048
     Dates: start: 198811, end: 198905

REACTIONS (12)
  - Colitis ulcerative [Unknown]
  - Hiatus hernia [Unknown]
  - Inflammatory bowel disease [Unknown]
  - Hepatic enzyme increased [Unknown]
  - Gastrooesophageal reflux disease [Unknown]
  - Biliary cirrhosis primary [Recovered/Resolved]
  - Chronic hepatic failure [Recovering/Resolving]
  - Pruritus [Unknown]
  - Oedema [Unknown]
  - Haematochezia [Unknown]
  - Osteoporosis [Unknown]
  - Anaemia [Unknown]

NARRATIVE: CASE EVENT DATE: 1989
